FAERS Safety Report 6551820-9 (Version None)
Quarter: 2010Q1

REPORT INFORMATION
  Report Type: 
  Country: None (occurrence: None)
  Receive Date: 20100120
  Receipt Date: 20100106
  Transmission Date: 20100710
  Serious: Yes (Death)
  Sender: FDA-Public Use
  Company Number: POMP-1000787

PATIENT
  Age: 5 Month
  Sex: Male
  Weight: 6.1 kg

DRUGS (3)
  1. MYOZYME [Suspect]
     Indication: GLYCOGEN STORAGE DISEASE TYPE II
     Dosage: 40 MG/KG, 1X/W, INTRAVENOUS
     Route: 042
     Dates: start: 20091116, end: 20091116
  2. MYOZYME [Suspect]
  3. PROPRANOLOL [Concomitant]

REACTIONS (2)
  - CARDIAC FAILURE CONGESTIVE [None]
  - RESPIRATORY FAILURE [None]
